FAERS Safety Report 9829826 (Version 1)
Quarter: 2014Q1

REPORT INFORMATION
  Report Type: Spontaneous
  Country: US (occurrence: US)
  Receive Date: 20140120
  Receipt Date: 20140120
  Transmission Date: 20141002
  Serious: Yes (Hospitalization)
  Sender: FDA-Public Use
  Company Number: US-AMGEN-USASP2014002934

PATIENT
  Age: 30 Year
  Sex: Female

DRUGS (3)
  1. FILGRASTIM [Suspect]
     Indication: HAEMATOPOIETIC STEM CELL MOBILISATION
     Dosage: UNK UNK, BID
     Route: 065
  2. IFOSFAMIDE [Concomitant]
     Dosage: 3330 MG/M2, UNK
  3. ETOPOSIDE [Concomitant]
     Dosage: 150 MG/M2, EVERY 12 HOURS FOR 3 DAYS

REACTIONS (2)
  - Pain in extremity [Recovering/Resolving]
  - Back pain [Recovering/Resolving]
